FAERS Safety Report 7731956-7 (Version None)
Quarter: 2011Q3

REPORT INFORMATION
  Report Type: 
  Country: None (occurrence: None)
  Receive Date: 20110906
  Receipt Date: 20110720
  Transmission Date: 20111222
  Serious: No
  Sender: FDA-Public Use
  Company Number: US-AMGEN-USASP2011036939

PATIENT
  Age: 70 Year
  Sex: Female

DRUGS (9)
  1. VITAMIN D                          /00318501/ [Concomitant]
  2. VITAMIN C                          /00008001/ [Concomitant]
  3. ACCUPRIL [Concomitant]
  4. CALCIUM CARBONATE [Concomitant]
  5. MULTIVITAMIN                       /00097801/ [Concomitant]
  6. ATENOLOL [Concomitant]
  7. LEVOTHYROXINE SODIUM [Concomitant]
  8. FISH OIL [Concomitant]
  9. PROLIA [Suspect]
     Indication: OSTEOPOROSIS POSTMENOPAUSAL
     Dosage: 60 MG, Q6MO
     Dates: start: 20110401

REACTIONS (2)
  - INFLUENZA LIKE ILLNESS [None]
  - MYALGIA [None]
